FAERS Safety Report 9014736 (Version 2)
Quarter: 2013Q1

REPORT INFORMATION
  Report Type: Spontaneous
  Country: ES (occurrence: ES)
  Receive Date: 20130115
  Receipt Date: 20130131
  Transmission Date: 20140127
  Serious: Yes (Other)
  Sender: FDA-Public Use
  Company Number: ES-PFIZER INC-2013017768

PATIENT
  Age: 48 Year
  Sex: Male

DRUGS (5)
  1. LYRICA [Suspect]
     Indication: POST LAMINECTOMY SYNDROME
     Dosage: 300 MG, 2X/DAY
     Dates: start: 200912
  2. CYMBALTA [Suspect]
     Indication: POST LAMINECTOMY SYNDROME
     Dosage: 60 MG, 1X/DAY
     Route: 048
     Dates: start: 200911
  3. LIORESAL [Suspect]
     Indication: POST LAMINECTOMY SYNDROME
     Dosage: UNK MG, UNK
     Route: 048
     Dates: start: 200812
  4. RIVOTRIL [Suspect]
     Indication: POST LAMINECTOMY SYNDROME
     Dosage: 0.6 MG, UNK
     Route: 048
     Dates: start: 200912
  5. ZALDIAR [Suspect]
     Indication: POST LAMINECTOMY SYNDROME
     Dosage: 1 DF, 1X/DAY
     Route: 048
     Dates: start: 201005

REACTIONS (1)
  - Erectile dysfunction [Not Recovered/Not Resolved]
